FAERS Safety Report 4511915-8 (Version None)
Quarter: 2004Q4

REPORT INFORMATION
  Report Type: 
  Country: None (occurrence: None)
  Receive Date: 20041123
  Receipt Date: 20041108
  Transmission Date: 20050328
  Serious: Yes (Other)
  Sender: FDA-Public Use
  Company Number: DSA_81137_2004

PATIENT
  Age: 56 Year
  Sex: Female
  Weight: 63.05 kg

DRUGS (10)
  1. XYREM [Suspect]
     Indication: HYPERSOMNIA
     Dosage: 3 G TWICE NIGHTLY PO
     Route: 048
     Dates: start: 20041001, end: 20041005
  2. XYREM [Suspect]
     Indication: INSOMNIA
     Dosage: 3 G TWICE NIGHTLY PO
     Route: 048
     Dates: start: 20041001, end: 20041005
  3. XYREM [Suspect]
     Indication: SLEEP DISORDER
     Dosage: 3 G TWICE NIGHTLY PO
     Route: 048
     Dates: start: 20041001, end: 20041005
  4. XYREM [Suspect]
     Indication: HYPERSOMNIA
     Dosage: 4.5 G TWICE NIGHTLY PO
     Route: 048
     Dates: start: 20041005, end: 20041008
  5. XYREM [Suspect]
     Indication: INSOMNIA
     Dosage: 4.5 G TWICE NIGHTLY PO
     Route: 048
     Dates: start: 20041005, end: 20041008
  6. XYREM [Suspect]
     Indication: SLEEP DISORDER
     Dosage: 4.5 G TWICE NIGHTLY PO
     Route: 048
     Dates: start: 20041005, end: 20041008
  7. PROVIGIL [Concomitant]
  8. ADDERALL 20 [Concomitant]
  9. PROZAC [Concomitant]
  10. DIPHENHYDRAMINE [Concomitant]

REACTIONS (7)
  - DRUG EFFECT DECREASED [None]
  - DRUG HYPERSENSITIVITY [None]
  - MIGRAINE [None]
  - PARAESTHESIA [None]
  - SENSATION OF HEAVINESS [None]
  - SLEEP PARALYSIS [None]
  - SWOLLEN TONGUE [None]
